FAERS Safety Report 17271134 (Version 2)
Quarter: 2020Q3

REPORT INFORMATION
  Report Type: Other
  Country: GB (occurrence: GB)
  Receive Date: 20200115
  Receipt Date: 20200826
  Transmission Date: 20201102
  Serious: No
  Sender: FDA-Public Use
  Company Number: GB-LUPIN PHARMACEUTICALS INC.-2019-06451

PATIENT
  Age: 85 Year
  Sex: Female
  Weight: 84 kg

DRUGS (15)
  1. MACROGOL [Concomitant]
     Active Substance: POLYETHYLENE GLYCOLS
     Indication: ILL-DEFINED DISORDER
     Dosage: 1 DOSAGE FORM (TAKE CONTENTS OF ONE SACHET UP TO ONCE OR TWICE)
     Route: 065
     Dates: start: 20190701
  2. TRAZODONE [Concomitant]
     Active Substance: TRAZODONE HYDROCHLORIDE
     Indication: ILL-DEFINED DISORDER
     Dosage: 1 DOSAGE FORM, QD (ONE TO BE TAKEN AT NIGHT)
     Route: 065
     Dates: start: 20190122
  3. PARACETAMOL [Concomitant]
     Active Substance: ACETAMINOPHEN
     Indication: ILL-DEFINED DISORDER
     Dosage: TAKE 1 OR 2, 4 TIMES/DAY
     Route: 065
     Dates: start: 20190122
  4. MEMANTINE. [Suspect]
     Active Substance: MEMANTINE
     Indication: ILL-DEFINED DISORDER
     Dosage: 1 DOSAGE FORM, QD (TAKE ONE DAILY)
     Route: 065
     Dates: start: 20190607
  5. TOLTERODINE TARTRATE. [Concomitant]
     Active Substance: TOLTERODINE TARTRATE
     Indication: ILL-DEFINED DISORDER
     Dosage: 1 DOSAGE FORM, QD (TAKE ONE DAILY)
     Route: 065
     Dates: start: 20190122
  6. OLANZAPINE. [Concomitant]
     Active Substance: OLANZAPINE
     Indication: ILL-DEFINED DISORDER
     Dosage: 1 DOSAGE FORM, QD (TAKE ONE DAILY)
     Route: 065
     Dates: start: 20190122
  7. CETRABEN [LIGHT LIQUID PARAFFIN;WHITE SOFT PARAFFIN] [Concomitant]
     Indication: ILL-DEFINED DISORDER
     Dosage: LEGS
     Route: 065
     Dates: start: 20190322
  8. CLOPIDOGREL [Concomitant]
     Active Substance: CLOPIDOGREL BISULFATE
     Indication: ILL-DEFINED DISORDER
     Dosage: 1 DOSAGE FORM, QD (TAKE ONE ONCE DAILY)
     Route: 065
     Dates: start: 20190122
  9. ALENDRONIC ACID [Concomitant]
     Active Substance: ALENDRONIC ACID
     Indication: ILL-DEFINED DISORDER
     Dosage: TAKE ONE WEEKLY
     Route: 065
     Dates: start: 20190122
  10. RANITIDINE. [Concomitant]
     Active Substance: RANITIDINE
     Indication: ILL-DEFINED DISORDER
     Dosage: 1 DOSAGE FORM, BID (TAKE ONE TWICE DAILY)
     Route: 065
     Dates: start: 20190122
  11. NITROFURANTOIN. [Concomitant]
     Active Substance: NITROFURANTOIN
     Indication: ILL-DEFINED DISORDER
     Dosage: 1 DOSAGE FORM, BID (TAKE ONE TWICE DAILY)
     Route: 065
     Dates: start: 20190427, end: 20190502
  12. SIMVASTATIN. [Concomitant]
     Active Substance: SIMVASTATIN
     Indication: ILL-DEFINED DISORDER
     Dosage: 1 DOSAGE FORM, QD (TAKE ONE AT NIGHT)
     Route: 065
     Dates: start: 20190122
  13. CASSIA SENNA [Concomitant]
     Active Substance: HERBALS\SENNOSIDES
     Indication: ILL-DEFINED DISORDER
     Dosage: TAKE 1 OR 2 AT NIGHT
     Route: 065
     Dates: start: 20190122
  14. CALCIUM CARBONATE. [Concomitant]
     Active Substance: CALCIUM CARBONATE
     Indication: ILL-DEFINED DISORDER
     Dosage: 1 DOSAGE FORM, BID (TAKE ONE TWICE DAILY )
     Route: 065
     Dates: start: 20190122
  15. DICLOFENAC DIETHYLAMINE [Concomitant]
     Active Substance: DICLOFENAC DIETHYLAMINE
     Indication: ILL-DEFINED DISORDER
     Dosage: APPLY 3 TIMES/DAY WHEN REQUIRED
     Route: 061
     Dates: start: 20190122

REACTIONS (1)
  - Dizziness [Recovered/Resolved]
